FAERS Safety Report 7734863-9 (Version None)
Quarter: 2011Q3

REPORT INFORMATION
  Report Type: 
  Country: None (occurrence: None)
  Receive Date: 20110907
  Receipt Date: 20110901
  Transmission Date: 20111222
  Serious: Yes (Other)
  Sender: FDA-Public Use
  Company Number: US-ABBOTT-11P-163-0850123-00

PATIENT
  Sex: Female

DRUGS (4)
  1. FOSAMAX [Concomitant]
     Indication: OSTEOPOROSIS
  2. PRILOSEC [Concomitant]
     Indication: DYSPEPSIA
  3. HUMIRA [Suspect]
     Indication: CROHN'S DISEASE
     Route: 058
     Dates: start: 20101201, end: 20110607
  4. OSCAL PLUS VITAMINS [Concomitant]
     Indication: VITAMIN SUPPLEMENTATION

REACTIONS (2)
  - CROHN'S DISEASE [None]
  - GASTROINTESTINAL STENOSIS [None]
